FAERS Safety Report 8556112-4 (Version None)
Quarter: 2012Q3

REPORT INFORMATION
  Report Type: 
  Country: None (occurrence: None)
  Receive Date: 20120801
  Receipt Date: 20120726
  Transmission Date: 20120928
  Serious: Yes (Life-Threatening, Hospitalization, Other)
  Sender: FDA-Public Use
  Company Number: US-JNJFOC-20120408629

PATIENT
  Sex: Male
  Weight: 116.12 kg

DRUGS (6)
  1. ASPIRIN [Concomitant]
     Indication: ANTICOAGULANT THERAPY
     Route: 065
     Dates: start: 20090501
  2. NAPROXEN (ALEVE) [Concomitant]
     Indication: PAIN
     Dosage: AS NEEDED
     Route: 065
     Dates: start: 20110301
  3. FLONASE [Concomitant]
     Indication: HYPERSENSITIVITY
     Dosage: 2 SPRAYS EACH NOSTRIL
     Route: 065
     Dates: start: 20110401
  4. STELARA [Suspect]
     Route: 058
     Dates: start: 20100501
  5. STELARA [Suspect]
     Indication: PSORIASIS
     Route: 058
     Dates: start: 20120427
  6. STELARA [Suspect]
     Route: 058
     Dates: start: 20111213, end: 20111213

REACTIONS (2)
  - HEPATIC STEATOSIS [None]
  - DIVERTICULAR PERFORATION [None]
